FAERS Safety Report 4793550-X (Version None)
Quarter: 2005Q4

REPORT INFORMATION
  Report Type: 
  Country: None (occurrence: None)
  Receive Date: 20051011
  Receipt Date: 20051004
  Transmission Date: 20060501
  Serious: Yes (Hospitalization)
  Sender: FDA-Public Use
  Company Number: PHRM2005FR02635

PATIENT
  Age: 80 Year
  Sex: Female

DRUGS (1)
  1. LIORESAL [Suspect]
     Indication: MULTIPLE SCLEROSIS
     Dosage: 10 MG, QD
     Route: 048
     Dates: end: 20050901

REACTIONS (7)
  - ABDOMINAL DISTENSION [None]
  - C-REACTIVE PROTEIN INCREASED [None]
  - DRUG WITHDRAWAL SYNDROME [None]
  - ILEUS PARALYTIC [None]
  - PYREXIA [None]
  - URINE ABNORMALITY [None]
  - WHITE BLOOD CELL COUNT INCREASED [None]
